FAERS Safety Report 8417489-3 (Version None)
Quarter: 2012Q2

REPORT INFORMATION
  Report Type: 
  Country: None (occurrence: None)
  Receive Date: 20120606
  Receipt Date: 20120522
  Transmission Date: 20120825
  Serious: Yes (Death, Hospitalization)
  Sender: FDA-Public Use
  Company Number: CA-BAXTER-2012BAX005033

PATIENT
  Sex: Male

DRUGS (4)
  1. DIANEAL [Suspect]
     Route: 033
  2. DIANEAL [Suspect]
     Route: 033
  3. EXTRANEAL [Suspect]
     Route: 033
  4. DIANEAL [Suspect]
     Route: 033

REACTIONS (1)
  - MYOCARDIAL INFARCTION [None]
